FAERS Safety Report 15266600 (Version 1)
Quarter: 2018Q3

REPORT INFORMATION
  Report Type: Spontaneous
  Country: FR (occurrence: FR)
  Receive Date: 20180810
  Receipt Date: 20180810
  Transmission Date: 20181010
  Serious: Yes (Hospitalization)
  Sender: FDA-Public Use
  Company Number: PHHY2018FR068608

PATIENT
  Age: 71 Year
  Sex: Male

DRUGS (4)
  1. ESCITALOPRAM [Suspect]
     Active Substance: ESCITALOPRAM OXALATE
     Indication: DEPRESSION
     Dosage: 10 MG, QD (IN THE EVENING)
     Route: 048
     Dates: start: 20180607
  2. RISPERIDONE. [Suspect]
     Active Substance: RISPERIDONE
     Indication: AFFECTIVE DISORDER
     Dosage: 1 MG, QD (0.5 MG MORNING AND EVENING)
     Route: 048
     Dates: end: 20180603
  3. OLANZAPINE. [Suspect]
     Active Substance: OLANZAPINE
     Indication: AFFECTIVE DISORDER
     Dosage: 5 MG, QD (IN THE EVENING)
     Route: 048
     Dates: start: 20180604
  4. LOXAPINE. [Suspect]
     Active Substance: LOXAPINE
     Indication: AGITATION
     Dosage: 5 GTT, PRN (IF NEEDED)
     Route: 048

REACTIONS (2)
  - Hepatocellular injury [Not Recovered/Not Resolved]
  - Cholestasis [Not Recovered/Not Resolved]

NARRATIVE: CASE EVENT DATE: 20180605
